FAERS Safety Report 10078883 (Version 3)
Quarter: 2014Q2

REPORT INFORMATION
  Report Type: Spontaneous
  Country: GB (occurrence: None)
  Receive Date: 20140411
  Receipt Date: 20140519
  Transmission Date: 20141212
  Serious: Yes (Hospitalization)
  Sender: FDA-Public Use
  Company Number: GB-015250

PATIENT
  Age: 31 Year
  Sex: Female

DRUGS (2)
  1. MENOPUR [Suspect]
     Indication: IN VITRO FERTILISATION
     Route: 058
     Dates: start: 20140328, end: 20140329
  2. METFORMIN [Concomitant]

REACTIONS (4)
  - Abdominal pain [None]
  - Dyspnoea [None]
  - Vomiting [None]
  - Ovarian hyperstimulation syndrome [None]
